APPROVED DRUG PRODUCT: ALTACE
Active Ingredient: RAMIPRIL
Strength: 1.25MG **Federal Register determination that product was not discontinued or withdrawn for safety or effectiveness reasons**
Dosage Form/Route: TABLET;ORAL
Application: N022021 | Product #001
Applicant: KING PHARMACEUTICALS INC SUB PFIZER INC
Approved: Feb 27, 2007 | RLD: Yes | RS: No | Type: DISCN